FAERS Safety Report 15310996 (Version 1)
Quarter: 2018Q3

REPORT INFORMATION
  Report Type: Spontaneous
  Country: US (occurrence: US)
  Receive Date: 20180814
  Receipt Date: 20180814
  Transmission Date: 20181010
  Serious: Yes (Other)
  Sender: FDA-Public Use
  Company Number: None

PATIENT
  Age: 44 Year
  Sex: Female
  Weight: 54.45 kg

DRUGS (4)
  1. FERUMOXYTOL [Suspect]
     Active Substance: FERUMOXYTOL NON-STOICHIOMETRIC MAGNETITE
  2. VITAMIN C [Concomitant]
     Active Substance: ASCORBIC ACID
  3. PROBIOTIC [Concomitant]
     Active Substance: PROBIOTICS NOS
  4. VITAMIN B12 [Concomitant]
     Active Substance: CYANOCOBALAMIN

REACTIONS (10)
  - Hypertension [None]
  - Flushing [None]
  - Dysuria [None]
  - Infusion related reaction [None]
  - Dyspnoea [None]
  - Abdominal pain upper [None]
  - Renal pain [None]
  - Dizziness [None]
  - Tachycardia [None]
  - Back pain [None]

NARRATIVE: CASE EVENT DATE: 20180813
